FAERS Safety Report 8623392-6 (Version None)
Quarter: 2012Q3

REPORT INFORMATION
  Report Type: 
  Country: None (occurrence: None)
  Receive Date: 20120824
  Receipt Date: 20120824
  Transmission Date: 20120928
  Serious: Yes (Life-Threatening)
  Sender: FDA-Public Use
  Company Number: None

PATIENT
  Age: 31 Year
  Sex: Female
  Weight: 81.8 kg

DRUGS (1)
  1. BENZOCAINE SPRAY 20% [Suspect]
     Indication: SURGERY
     Dosage: 2 SPRAYS, PRN, TOP
     Route: 061
     Dates: start: 20120817, end: 20120817

REACTIONS (1)
  - BLOOD METHAEMOGLOBIN PRESENT [None]
